FAERS Safety Report 6664799-6 (Version None)
Quarter: 2010Q1

REPORT INFORMATION
  Report Type: 
  Country: None (occurrence: None)
  Receive Date: 20100330
  Receipt Date: 20100322
  Transmission Date: 20100710
  Serious: Yes (Other)
  Sender: FDA-Public Use
  Company Number: 20108199

PATIENT
  Sex: Female

DRUGS (5)
  1. LIORESAL [Suspect]
     Indication: MUSCLE SPASTICITY
     Dosage: 476.2-232.8 MCG, DAILY, INTRATEHCAL
     Route: 037
  2. FLUOXETINE [Concomitant]
  3. SINEQUAN [Concomitant]
  4. CLONAZEPAM [Concomitant]
  5. VYVANSE [Concomitant]

REACTIONS (6)
  - ASTHENIA [None]
  - DECREASED ACTIVITY [None]
  - DRUG INEFFECTIVE [None]
  - GAIT DISTURBANCE [None]
  - OVERDOSE [None]
  - PAIN [None]
